FAERS Safety Report 7540500-9 (Version None)
Quarter: 2011Q2

REPORT INFORMATION
  Report Type: 
  Country: None (occurrence: None)
  Receive Date: 20110610
  Receipt Date: 20110322
  Transmission Date: 20111010
  Serious: Yes (Other)
  Sender: FDA-Public Use
  Company Number: A0919495A

PATIENT
  Age: 3 Year
  Sex: Male

DRUGS (2)
  1. ASTHMA MEDICATION [Suspect]
     Indication: ASTHMA
     Route: 065
  2. VENTOLIN HFA [Suspect]
     Indication: ASTHMA
     Route: 065

REACTIONS (2)
  - ASTHMA [None]
  - MALAISE [None]
